FAERS Safety Report 10041993 (Version 1)
Quarter: 2014Q1

REPORT INFORMATION
  Report Type: Spontaneous
  Country: US (occurrence: US)
  Receive Date: 20140327
  Receipt Date: 20140327
  Transmission Date: 20141002
  Serious: Yes (Other)
  Sender: FDA-Public Use
  Company Number: US-UCBSA-115468

PATIENT
  Sex: Female
  Weight: 60.32 kg

DRUGS (7)
  1. VIMPAT [Suspect]
     Indication: GRAND MAL CONVULSION
     Dates: start: 2012
  2. AMLODIPINE [Suspect]
     Dosage: UNKNOWN DOSE
  3. AMLODIPINE [Suspect]
     Dates: start: 20140125, end: 20140217
  4. LISINOPRIL [Suspect]
     Dosage: DOSE: 5 MG
     Dates: start: 20140217, end: 20140219
  5. LISINOPRIL [Suspect]
     Dosage: DOSE: 10 MG
     Dates: start: 20140220, end: 20140222
  6. LISINOPRIL [Suspect]
     Dates: start: 20140305, end: 201403
  7. LISINOPRIL [Suspect]
     Dosage: DAILY DOSE: 2.5 MG
     Dates: start: 201403

REACTIONS (4)
  - Hypertension [Unknown]
  - Palpitations [Not Recovered/Not Resolved]
  - Weight decreased [Unknown]
  - Feeling abnormal [Unknown]
